FAERS Safety Report 6648749-4 (Version None)
Quarter: 2010Q1

REPORT INFORMATION
  Report Type: 
  Country: None (occurrence: None)
  Receive Date: 20100324
  Receipt Date: 20100312
  Transmission Date: 20100710
  Serious: Yes (Hospitalization)
  Sender: FDA-Public Use
  Company Number: IT-PFIZER INC-2010032904

PATIENT
  Age: 37 Year
  Sex: Male

DRUGS (3)
  1. ZAVEDOS [Suspect]
     Indication: ACUTE MYELOID LEUKAEMIA
     Dosage: 23 MG, X/DAY
     Route: 042
     Dates: start: 20100227, end: 20100301
  2. ARACYTIN [Suspect]
     Indication: ACUTE MYELOID LEUKAEMIA
     Dosage: 380 MG, X/DAY
     Route: 042
     Dates: start: 20100227, end: 20100305
  3. ETOPOSIDE [Suspect]
     Indication: ACUTE MYELOID LEUKAEMIA
     Dosage: 190 MG, X/DAY
     Route: 042
     Dates: start: 20100227, end: 20100303

REACTIONS (1)
  - STOMATITIS [None]
